FAERS Safety Report 11115042 (Version 1)
Quarter: 2015Q2

REPORT INFORMATION
  Report Type: Spontaneous
  Country: FR (occurrence: None)
  Receive Date: 20150513
  Receipt Date: 20150513
  Transmission Date: 20150821
  Serious: Yes (Disabling)
  Sender: FDA-Public Use
  Company Number: FK201502166

PATIENT
  Age: 49 Year
  Sex: Male
  Weight: 43 kg

DRUGS (15)
  1. DAONIL (GLIBENCLAMIDE) [Concomitant]
  2. CARBOPLATIN (CARBOPLATIN) [Concomitant]
     Active Substance: CARBOPLATIN
  3. HUMALOG [Concomitant]
     Active Substance: INSULIN LISPRO
  4. TRIATEC (LOSARTAN POTASSIUM) [Concomitant]
  5. TAHOR [Concomitant]
     Active Substance: ATORVASTATIN CALCIUM
  6. TOPLEXIL (OXOMEMAZINE) [Concomitant]
     Active Substance: OXOMEMAZINE
  7. MONOTILDEN LP (DILTIAZEM HYDROCHLORIDE) [Concomitant]
  8. OMACOR (OMEGA 3-ACID ETHYL ESTER) [Concomitant]
  9. DUPHALAC (LACTULOSE) [Concomitant]
  10. PACLITAXEL 6 MG/ML CONCENTRATE FOR SOLUTION FOR INFUSION (PACLITAXEL) (PACLITAXEL) [Suspect]
     Active Substance: PACLITAXEL
     Indication: LUNG CANCER METASTATIC
     Route: 042
     Dates: start: 20150107, end: 20150107
  11. KARDEGIC [Concomitant]
     Active Substance: ASPIRIN LYSINE
  12. PROCORALAN (IVABRADINE HYDROCHLORIDE) [Concomitant]
  13. LANTUS [Concomitant]
     Active Substance: INSULIN GLARGINE
  14. DALFAGAN (PARACETAMOL) [Concomitant]
  15. METFORMINE (METFROMIN HYDROCHLORIDE) [Concomitant]

REACTIONS (2)
  - Orthostatic hypotension [None]
  - Paraesthesia [None]

NARRATIVE: CASE EVENT DATE: 20150109
